FAERS Safety Report 13192207 (Version 1)
Quarter: 2017Q1

REPORT INFORMATION
  Report Type: Spontaneous
  Country: US (occurrence: US)
  Receive Date: 20170207
  Receipt Date: 20170207
  Transmission Date: 20170428
  Serious: No
  Sender: FDA-Public Use
  Company Number: None

PATIENT
  Age: 19 Year
  Sex: Male

DRUGS (1)
  1. EDROPHONIUM CHLORIDE 150MG/15ML [Suspect]
     Active Substance: EDROPHONIUM CHLORIDE
     Dosage: DOSAGE FORM - INJECTABLE?ADM. ROUTE - IV OR IM?TYPE - MULTIPLE DOSE VIAL?SIDE - 15 ML

REACTIONS (9)
  - Ophthalmoplegia [None]
  - Product label confusion [None]
  - Salivary hypersecretion [None]
  - Miosis [None]
  - Accidental overdose [None]
  - Cholinergic syndrome [None]
  - Agitation [None]
  - Toxicity to various agents [None]
  - Bradycardia [None]
